FAERS Safety Report 8907758 (Version 11)
Quarter: 2014Q2

REPORT INFORMATION
  Report Type: Report from Study
  Country: DK (occurrence: DK)
  Receive Date: 20121113
  Receipt Date: 20140627
  Transmission Date: 20141212
  Serious: Yes (Death, Hospitalization, Other)
  Sender: FDA-Public Use
  Company Number: PHHO2011DK08470

PATIENT
  Sex: 0

DRUGS (23)
  1. BLINDED ENALAPRIL [Suspect]
     Indication: CARDIAC FAILURE CHRONIC
     Dosage: CODE NOT BROKEN
     Route: 048
     Dates: start: 20101120, end: 20110516
  2. BLINDED LCZ696 [Suspect]
     Indication: CARDIAC FAILURE CHRONIC
     Dosage: CODE NOT BROKEN
     Route: 048
     Dates: start: 20101120, end: 20110516
  3. BLINDED NO TREATMENT RECEIVED [Suspect]
     Indication: CARDIAC FAILURE CHRONIC
     Dosage: CODE NOT BROKEN
     Route: 048
     Dates: start: 20101120, end: 20110516
  4. BLINDED ENALAPRIL [Suspect]
     Dosage: CODE NOT BROKEN
     Route: 048
     Dates: start: 20110815
  5. BLINDED LCZ696 [Suspect]
     Dosage: CODE NOT BROKEN
     Route: 048
     Dates: start: 20110815
  6. BLINDED NO TREATMENT RECEIVED [Suspect]
     Dosage: CODE NOT BROKEN
     Route: 048
     Dates: start: 20110815
  7. BLINDED ENALAPRIL [Suspect]
     Dosage: CODE NOT BROKEN
     Route: 048
     Dates: start: 20110919, end: 20111121
  8. BLINDED LCZ696 [Suspect]
     Dosage: CODE NOT BROKEN
     Route: 048
     Dates: start: 20110919, end: 20111121
  9. BLINDED NO TREATMENT RECEIVED [Suspect]
     Dosage: CODE NOT BROKEN
     Route: 048
     Dates: start: 20110919, end: 20111121
  10. WARFARIN [Concomitant]
     Indication: ATRIAL FIBRILLATION
     Dosage: UNK, PRN
     Dates: start: 20071208, end: 20110517
  11. WARFARIN [Concomitant]
     Dosage: 2.5 MG, UNK
     Dates: start: 20111123, end: 20121101
  12. COLCHICINE [Concomitant]
     Indication: GOUT
     Dosage: 0.5 MG, QD
     Route: 048
     Dates: start: 20110317, end: 20110516
  13. COLCHICINE [Concomitant]
     Dosage: 0.5 MG, QD (EVERY SECOND DAY)
     Route: 048
     Dates: start: 20111122
  14. SPIRONOLACTONE [Concomitant]
     Dosage: 12.5 MG, QD
     Route: 048
     Dates: start: 20110429, end: 20110516
  15. PARACETAMOL [Concomitant]
     Indication: GOUT
     Dosage: 2 G, Q6H
     Route: 048
     Dates: start: 20110119, end: 20110517
  16. PARACETAMOL [Concomitant]
     Dosage: 1 G, PRN
     Route: 048
     Dates: start: 20120322
  17. METOPROLOL [Concomitant]
     Indication: CARDIAC FAILURE CONGESTIVE
     Dosage: 50 MG, QD
     Dates: start: 20071108, end: 20110517
  18. METOPROLOL [Concomitant]
     Dosage: 50 MG, QD
     Dates: start: 20110610
  19. TRADOLAN [Concomitant]
     Indication: GOUT
     Dosage: 50 MG, QD
     Dates: start: 20110317, end: 20110516
  20. DABIGATRAN [Concomitant]
     Indication: ATRIAL FIBRILLATION
     Dosage: 10 MG, BID
     Route: 065
     Dates: start: 201110, end: 20111121
  21. FRUSEMIDE [Concomitant]
     Indication: CARDIAC FAILURE CONGESTIVE
     Dosage: 40 MG, BID
     Dates: start: 20110617
  22. POTASSIUM [Concomitant]
     Dosage: 750 MG, QD
     Dates: start: 20120807
  23. PREDNISOLONE [Concomitant]
     Dosage: 10 MG, QD
     Route: 065
     Dates: start: 20111110

REACTIONS (5)
  - Salivary gland enlargement [Fatal]
  - Asthenia [Fatal]
  - Dehydration [Fatal]
  - Syncope [Recovered/Resolved]
  - Ventricular tachycardia [Recovered/Resolved]
